FAERS Safety Report 9082587 (Version 1)
Quarter: 2013Q1

REPORT INFORMATION
  Report Type: Report from Study
  Country: US (occurrence: US)
  Receive Date: 20130130
  Receipt Date: 20130130
  Transmission Date: 20140127
  Serious: No
  Sender: FDA-Public Use
  Company Number: US-ABBOTT-12P-163-0954968-00

PATIENT
  Age: 30 Year
  Sex: Female

DRUGS (6)
  1. HUMIRA 40 MG/0.8 ML PEN [Suspect]
     Indication: CROHN^S DISEASE
     Dates: start: 20120703, end: 20120710
  2. ASACOL [Concomitant]
     Indication: CROHN^S DISEASE
  3. NEXIUM [Concomitant]
     Indication: GASTROOESOPHAGEAL REFLUX DISEASE
     Dosage: DAILY
  4. ALLEGRA [Concomitant]
     Indication: SEASONAL ALLERGY
  5. BUSPAR [Concomitant]
     Indication: DEPRESSION
  6. SYNTHROID [Concomitant]
     Indication: HYPOTHYROIDISM

REACTIONS (10)
  - Oropharyngeal discomfort [Recovering/Resolving]
  - Ear discomfort [Recovering/Resolving]
  - Dyspnoea [Recovering/Resolving]
  - Influenza like illness [Recovering/Resolving]
  - Headache [Recovering/Resolving]
  - Abdominal pain upper [Recovering/Resolving]
  - Vomiting [Recovering/Resolving]
  - General physical health deterioration [Recovering/Resolving]
  - Bronchitis [Recovering/Resolving]
  - Sinusitis [None]
